FAERS Safety Report 10608310 (Version 1)
Quarter: 2014Q4

REPORT INFORMATION
  Report Type: Spontaneous
  Country: GB (occurrence: GB)
  Receive Date: 20141125
  Receipt Date: 20141125
  Transmission Date: 20150529
  Serious: Yes (Hospitalization, Other)
  Sender: FDA-Public Use
  Company Number: GB-ABBVIE-14P-167-1311840-00

PATIENT
  Age: 33 Year
  Sex: Female
  Weight: 87 kg

DRUGS (6)
  1. OLANZAPINE. [Concomitant]
     Active Substance: OLANZAPINE
     Indication: PRODUCT USED FOR UNKNOWN INDICATION
     Dosage: DOSAGE FORM UNSPECIFIED
     Route: 065
  2. DARUNAVIR [Suspect]
     Active Substance: DARUNAVIR
     Indication: HIV ANTIBODY POSITIVE
     Route: 048
     Dates: start: 20140704, end: 20140728
  3. RALTEGRAVIR [Suspect]
     Active Substance: RALTEGRAVIR
     Indication: HIV ANTIBODY POSITIVE
     Dosage: DOSAGE FORM: UNSPECIFIED 400 (TABLET/CAPSULE)
     Route: 065
     Dates: start: 20140704, end: 20140731
  4. TRUVADA [Suspect]
     Active Substance: EMTRICITABINE\TENOFOVIR DISOPROXIL FUMARATE
     Indication: HIV ANTIBODY POSITIVE
     Dosage: DOSAGE FORM: UNSPECIFIED, FIRST COURSE, TABLET/CAPSULE
     Route: 065
  5. ATAZANAVIR [Concomitant]
     Active Substance: ATAZANAVIR
     Indication: PRODUCT USED FOR UNKNOWN INDICATION
  6. NORVIR [Suspect]
     Active Substance: RITONAVIR
     Indication: HIV ANTIBODY POSITIVE
     Dosage: DOSAGE FORM UNSPECIFIED, TABET/CAPSULE
     Route: 048

REACTIONS (6)
  - Transaminases increased [Recovered/Resolved]
  - Malaise [Unknown]
  - Premature delivery [Recovered/Resolved]
  - Caesarean section [Unknown]
  - Abdominal pain upper [Unknown]
  - Nausea [Unknown]

NARRATIVE: CASE EVENT DATE: 20140724
